FAERS Safety Report 9057935 (Version 1)
Quarter: 2013Q1

REPORT INFORMATION
  Report Type: Spontaneous
  Country: US (occurrence: None)
  Receive Date: 20130204
  Receipt Date: 20130204
  Transmission Date: 20140127
  Serious: No
  Sender: FDA-Public Use
  Company Number: None

PATIENT
  Age: 34 Year
  Sex: Female
  Weight: 47.63 kg

DRUGS (1)
  1. RIZATRIPTAN 10MG UNK [Suspect]
     Indication: MIGRAINE
     Route: 048
     Dates: start: 20100101, end: 20110101

REACTIONS (3)
  - Product substitution issue [None]
  - Drug ineffective [None]
  - Impaired work ability [None]
